FAERS Safety Report 15866153 (Version 13)
Quarter: 2020Q1

REPORT INFORMATION
  Report Type: Report from Study
  Country: DE (occurrence: DE)
  Receive Date: 20190125
  Receipt Date: 20200204
  Transmission Date: 20200409
  Serious: Yes (Death, Hospitalization, Other)
  Sender: FDA-Public Use
  Company Number: DE-ROCHE-2249873

PATIENT
  Age: 45 Year
  Sex: Female

DRUGS (17)
  1. TORASEMID [Concomitant]
     Active Substance: TORSEMIDE
     Dosage: 1-0-0
     Route: 065
  2. OCREVUS [Suspect]
     Active Substance: OCRELIZUMAB
     Route: 042
     Dates: start: 20181015
  3. CLINDAMYCIN. [Suspect]
     Active Substance: CLINDAMYCIN
     Indication: SKIN BACTERIAL INFECTION
     Dosage: FOR 10 DAYS
     Route: 048
  4. RAMILICH [Concomitant]
     Active Substance: RAMIPRIL
     Route: 065
  5. RAMILICH [Concomitant]
     Active Substance: RAMIPRIL
     Dosage: 1-0-1
     Route: 065
  6. BISOPROLOL [Concomitant]
     Active Substance: BISOPROLOL
     Dosage: 1-0-0
     Route: 065
  7. RAMILICH [Concomitant]
     Active Substance: RAMIPRIL
     Route: 065
  8. VALETTE [Concomitant]
     Active Substance: DIENOGEST\ETHINYL ESTRADIOL
     Indication: CONTRACEPTION
  9. EPLERENONE. [Concomitant]
     Active Substance: EPLERENONE
     Dosage: 1-0-0
     Route: 065
  10. L-THYROXIN [LEVOTHYROXINE] [Concomitant]
     Active Substance: LEVOTHYROXINE SODIUM
     Route: 065
     Dates: end: 201907
  11. TECFIDERA [Concomitant]
     Active Substance: DIMETHYL FUMARATE
     Dosage: 1-0-1
     Route: 065
  12. ASPIRIN. [Concomitant]
     Active Substance: ASPIRIN
     Dosage: 0-1-0
     Route: 065
  13. OCREVUS [Suspect]
     Active Substance: OCRELIZUMAB
     Indication: RELAPSING-REMITTING MULTIPLE SCLEROSIS
     Route: 042
     Dates: start: 20181001
  14. RAMILICH [Concomitant]
     Active Substance: RAMIPRIL
     Route: 065
  15. VIGANTOLETTEN [Concomitant]
     Active Substance: CHOLECALCIFEROL
     Route: 065
  16. OCREVUS [Suspect]
     Active Substance: OCRELIZUMAB
     Route: 042
     Dates: start: 20190429, end: 20191015
  17. VITAMIN D3 [Concomitant]
     Active Substance: CHOLECALCIFEROL
     Dosage: 1-0-0
     Route: 065

REACTIONS (16)
  - Rash [Recovering/Resolving]
  - Nausea [Recovered/Resolved]
  - Abscess [Recovering/Resolving]
  - Skin bacterial infection [Recovered/Resolved]
  - Haematoma [Recovered/Resolved]
  - Device occlusion [Recovered/Resolved]
  - Vulvovaginal mycotic infection [Recovered/Resolved]
  - Oral fungal infection [Recovered/Resolved]
  - Vomiting [Unknown]
  - Leiomyoma [Not Recovered/Not Resolved]
  - Thrombosis [Not Recovered/Not Resolved]
  - Thrombosis [Not Recovered/Not Resolved]
  - Dyspepsia [Recovered/Resolved]
  - Body temperature increased [Recovered/Resolved]
  - Haematoma [Not Recovered/Not Resolved]
  - Death [Fatal]

NARRATIVE: CASE EVENT DATE: 20181001
